FAERS Safety Report 9477094 (Version 3)
Quarter: 2013Q4

REPORT INFORMATION
  Report Type: Spontaneous
  Country: US (occurrence: US)
  Receive Date: 20130826
  Receipt Date: 20131025
  Transmission Date: 20140711
  Serious: Yes (Hospitalization, Other)
  Sender: FDA-Public Use
  Company Number: US-BRISTOL-MYERS SQUIBB COMPANY-19210657

PATIENT
  Age: 62 Year
  Sex: Male

DRUGS (3)
  1. SPRYCEL (CML) TABS 100 MG [Suspect]
     Indication: CHRONIC MYELOID LEUKAEMIA
     Route: 048
     Dates: start: 20110817
  2. DOXEPIN [Concomitant]
  3. ZOCOR [Concomitant]
     Route: 048

REACTIONS (2)
  - Appendicitis perforated [Recovered/Resolved]
  - Lung disorder [Unknown]
